FAERS Safety Report 20931203 (Version 1)
Quarter: 2022Q2

REPORT INFORMATION
  Report Type: Spontaneous
  Country: US (occurrence: None)
  Receive Date: 20220607
  Receipt Date: 20220607
  Transmission Date: 20220721
  Serious: Yes (Hospitalization)
  Sender: FDA-Public Use
  Company Number: None

PATIENT
  Age: 72 Year
  Sex: Male
  Weight: 88 kg

DRUGS (9)
  1. TECARTUS [Suspect]
     Active Substance: BREXUCABTAGENE AUTOLEUCEL
     Indication: Mantle cell lymphoma
     Dosage: FREQUENCY : ONCE;?
     Route: 041
     Dates: start: 20220331, end: 20220331
  2. acyclovir (Zovirax) [Concomitant]
     Dates: start: 20220331, end: 20220607
  3. KEPPRA [Concomitant]
     Active Substance: LEVETIRACETAM
     Dates: start: 20220330, end: 20220607
  4. DECADRON [Concomitant]
     Active Substance: DEXAMETHASONE
     Dates: end: 20220408
  5. posaconazole (Noxafil) [Concomitant]
     Dates: end: 20220527
  6. methylPREDNISolone (SOLU-Medrol) [Concomitant]
     Dates: end: 20220421
  7. ZOSYN [Concomitant]
     Active Substance: PIPERACILLIN SODIUM\TAZOBACTAM SODIUM
     Dates: end: 20220413
  8. tocilizumab (Actemra [Concomitant]
     Dates: end: 20220405
  9. anakinra (Kineret) [Concomitant]
     Dates: end: 20220415

REACTIONS (2)
  - Cytokine release syndrome [None]
  - Immune effector cell-associated neurotoxicity syndrome [None]

NARRATIVE: CASE EVENT DATE: 20220331
